FAERS Safety Report 12232044 (Version 1)
Quarter: 2016Q2

REPORT INFORMATION
  Report Type: Spontaneous
  Country: FR (occurrence: FR)
  Receive Date: 20160401
  Receipt Date: 20160401
  Transmission Date: 20160815
  Serious: Yes (Life-Threatening, Other)
  Sender: FDA-Public Use
  Company Number: FR-GLAXOSMITHKLINE-FR2016GSK043421

PATIENT
  Age: 83 Year
  Sex: Female

DRUGS (20)
  1. PREVISCAN [Concomitant]
     Active Substance: FLUINDIONE
     Dosage: 20 MG, UNK
     Dates: end: 20160307
  2. MACROGOL [Concomitant]
     Active Substance: POLYETHYLENE GLYCOLS
  3. KENZEN [Concomitant]
     Active Substance: CANDESARTAN
     Dosage: 8 MG, UNK
  4. LEVOTHYROX [Concomitant]
     Active Substance: LEVOTHYROXINE
     Dosage: 100 UNK, UNK
  5. DAFALGAN [Concomitant]
     Active Substance: ACETAMINOPHEN
  6. ALLOPURINOL. [Concomitant]
     Active Substance: ALLOPURINOL
     Dosage: 200 MG, UNK
  7. CALCIUM + VITAMIN D [Concomitant]
     Active Substance: CALCIUM\VITAMIN D
  8. OMEPRAZOLE. [Concomitant]
     Active Substance: OMEPRAZOLE
     Dosage: 20 MG, UNK
  9. CORTANCYL [Concomitant]
     Active Substance: PREDNISONE
     Dosage: 3 MG, UNK
  10. ZOLPIDEM [Concomitant]
     Active Substance: ZOLPIDEM\ZOLPIDEM TARTRATE
     Dosage: 10 MG, UNK
  11. ZINNAT [Suspect]
     Active Substance: CEFUROXIME AXETIL
     Indication: PREMEDICATION
     Dosage: 1.5 G, SINGLE
     Route: 042
     Dates: start: 20160311, end: 20160311
  12. PROPOFOL. [Suspect]
     Active Substance: PROPOFOL
     Indication: INDUCTION OF ANAESTHESIA
     Dosage: 3 MG, SINGLE
     Route: 042
     Dates: start: 20160311, end: 20160311
  13. HEMIGOXINE [Concomitant]
     Active Substance: DIGOXIN
  14. DIOSMINE [Concomitant]
     Active Substance: HESPERIDIN
  15. ATRACURIUM [Suspect]
     Active Substance: ATRACURIUM
     Indication: INDUCTION OF ANAESTHESIA
     Dosage: 30 MG, SINGLE
     Route: 042
     Dates: start: 20160311, end: 20160311
  16. PRAVASTATIN [Concomitant]
     Active Substance: PRAVASTATIN\PRAVASTATIN SODIUM
     Dosage: 20 MG, UNK
  17. HYDROCORTISONE. [Suspect]
     Active Substance: HYDROCORTISONE
     Indication: PREMEDICATION
     Dosage: 50 MG, SINGLE
     Route: 042
     Dates: start: 20160311, end: 20160311
  18. LASILIX [Concomitant]
     Active Substance: FUROSEMIDE
     Dosage: 20 MG, UNK
  19. TARDYFERON [Concomitant]
     Active Substance: FERROUS SULFATE\FOLIC ACID
  20. REMIFENTANIL [Suspect]
     Active Substance: REMIFENTANIL
     Indication: INDUCTION OF ANAESTHESIA
     Dosage: 3.5 MG, SINGLE
     Route: 042
     Dates: start: 20160311, end: 20160311

REACTIONS (1)
  - Cardiac arrest [Recovered/Resolved]

NARRATIVE: CASE EVENT DATE: 20160311
